FAERS Safety Report 5505142-5 (Version None)
Quarter: 2007Q4

REPORT INFORMATION
  Report Type: 
  Country: None (occurrence: None)
  Receive Date: 20071102
  Receipt Date: 20071023
  Transmission Date: 20080405
  Serious: Yes (Hospitalization, Other)
  Sender: FDA-Public Use
  Company Number: US-AMGEN-QUU249316

PATIENT
  Sex: Male

DRUGS (2)
  1. ENBREL [Suspect]
     Indication: PSORIATIC ARTHROPATHY
     Route: 058
     Dates: start: 20050601
  2. ENBREL [Suspect]
     Indication: PSORIASIS

REACTIONS (4)
  - BENIGN NEOPLASM OF TESTIS [None]
  - PSORIASIS [None]
  - PSORIATIC ARTHROPATHY [None]
  - SARCOIDOSIS [None]
